FAERS Safety Report 24219516 (Version 1)
Quarter: 2024Q3

REPORT INFORMATION
  Report Type: Spontaneous
  Country: ES (occurrence: ES)
  Receive Date: 20240816
  Receipt Date: 20240816
  Transmission Date: 20241016
  Serious: Yes (Hospitalization, Other)
  Sender: FRESENIUS KABI
  Company Number: None

PATIENT
  Age: 68 Year
  Sex: Female
  Weight: 50 kg

DRUGS (7)
  1. OXALIPLATIN [Suspect]
     Active Substance: OXALIPLATIN
     Indication: Adenocarcinoma of colon
     Dosage: FIRST CYCLE 07/02/2024 SECOND CYCLE 07/22/2024
     Route: 042
     Dates: start: 20240702, end: 20240807
  2. CAPECITABINE [Suspect]
     Active Substance: CAPECITABINE
     Indication: Adenocarcinoma of colon
     Dosage: FIRST CYCLE 07/02/2024 SECOND CYCLE 07/22/2024 1300 MG/12H X 14 DAYS
     Route: 048
     Dates: start: 20240702, end: 20240807
  3. ACETAMINOPHEN [Suspect]
     Active Substance: ACETAMINOPHEN
     Indication: Abdominal pain upper
     Route: 048
     Dates: start: 20240801
  4. Paracetamol 1,000 mg oral solution/suspension 40 sachets [Concomitant]
     Indication: Product used for unknown indication
  5. Famotidine 20 mg 28 tablets [Concomitant]
     Indication: Product used for unknown indication
  6. FORTASEC 2 mg hard capsules, 20 capsules [Concomitant]
     Indication: Product used for unknown indication
  7. FORTECORTIN 4 mg pills, 30 tablets [Concomitant]
     Indication: Product used for unknown indication

REACTIONS (1)
  - Hepatitis acute [Recovering/Resolving]

NARRATIVE: CASE EVENT DATE: 20240806
